FAERS Safety Report 9302202 (Version 2)
Quarter: 2013Q4

REPORT INFORMATION
  Report Type: Spontaneous
  Country: US (occurrence: US)
  Receive Date: 20130522
  Receipt Date: 20131029
  Transmission Date: 20140711
  Serious: Yes (Hospitalization)
  Sender: FDA-Public Use
  Company Number: US-B.I. PHARMACEUTICALS,INC./RIDGEFIELD-2013-BI-14096BP

PATIENT
  Age: 81 Year
  Sex: Male
  Weight: 96.16 kg

DRUGS (20)
  1. PRADAXA [Suspect]
     Indication: ATRIAL FIBRILLATION
     Dosage: 300 MG
     Route: 048
     Dates: start: 20110330, end: 20110511
  2. PRADAXA [Suspect]
     Indication: ATRIAL FLUTTER
  3. ASPIRIN [Concomitant]
  4. FLOMAX [Concomitant]
     Dates: start: 200601, end: 201212
  5. MULTIVITAMIN [Concomitant]
  6. OXYGEN [Concomitant]
  7. HAWTHORN [Concomitant]
  8. VITAMIN B12 [Concomitant]
  9. FLUOXETINE [Concomitant]
     Dates: start: 200305, end: 201212
  10. TRAMADOL [Concomitant]
  11. ANDROGEL [Concomitant]
  12. AMIODARONE [Concomitant]
     Dates: start: 200703, end: 201212
  13. DIGOXIN [Concomitant]
     Dates: start: 200903, end: 201108
  14. ACETYLCYSTEINE [Concomitant]
  15. CARVEDILOL [Concomitant]
     Dates: start: 200801, end: 201212
  16. FUROSEMIDE [Concomitant]
     Dates: start: 200112, end: 201203
  17. LISINOPRIL [Concomitant]
  18. LIPITOR [Concomitant]
  19. ALLOPURINOL [Concomitant]
     Dates: start: 200806, end: 201212
  20. SPIRONOLACTONE [Concomitant]
     Dates: start: 200307, end: 201212

REACTIONS (4)
  - Gastrointestinal haemorrhage [Unknown]
  - Anaemia [Unknown]
  - Coagulopathy [Unknown]
  - Haematoma [Unknown]
